FAERS Safety Report 18953265 (Version 1)
Quarter: 2021Q1

REPORT INFORMATION
  Report Type: Report from Study
  Country: GB (occurrence: JP)
  Receive Date: 20210301
  Receipt Date: 20210301
  Transmission Date: 20210420
  Serious: Yes (Hospitalization, Other)
  Sender: FDA-Public Use
  Company Number: JP-ASTELLAS-2017US043733

PATIENT
  Age: 67 Year
  Sex: Male
  Weight: 61 kg

DRUGS (13)
  1. HEMOPORISON [Concomitant]
     Indication: HAEMORRHOIDAL HAEMORRHAGE
     Dosage: DOSAGE IS UNCERTAIN
     Route: 003
     Dates: start: 20160614
  2. ERLOTINIB [Suspect]
     Active Substance: ERLOTINIB
     Indication: LUNG ADENOCARCINOMA
     Route: 048
     Dates: start: 20160308, end: 2016
  3. ACUATIM [Concomitant]
     Active Substance: NADIFLOXACIN
     Indication: DERMATITIS ACNEIFORM
     Dosage: DOSAGE IS UNCERTAIN
     Route: 065
     Dates: start: 20160315
  4. URSODEOXYCHOLIC ACID [Concomitant]
     Active Substance: URSODIOL
     Indication: BLOOD BILIRUBIN INCREASED
     Dosage: DOSAGE IS UNCERTAIN
     Route: 048
     Dates: start: 20170112
  5. HIBON [Concomitant]
     Active Substance: RIBOFLAVIN
     Indication: DERMATITIS ACNEIFORM
     Dosage: DOSAGE IS UNCERTAIN
     Route: 065
     Dates: start: 20160315
  6. DIMEMORFAN PHOSPHATE [Concomitant]
     Active Substance: DIMEMORFAN PHOSPHATE
     Indication: PROPHYLAXIS
     Dosage: DOSAGE IS UNCERTAIN
     Route: 048
     Dates: start: 20161227
  7. PYDOXAL [Concomitant]
     Active Substance: PYRIDOXAL
     Indication: DERMATITIS ACNEIFORM
     Dosage: DOSAGE IS UNCERTAIN
     Route: 065
     Dates: start: 20160315
  8. ERLOTINIB [Suspect]
     Active Substance: ERLOTINIB
     Route: 048
     Dates: start: 20160510, end: 20170927
  9. SYMBICORT [Concomitant]
     Active Substance: BUDESONIDE\FORMOTEROL FUMARATE DIHYDRATE
     Indication: COUGH
     Dosage: DOSAGE IS UNCERTAIN
     Route: 055
     Dates: start: 20170323
  10. UNITALC (STERILE TALC) [Concomitant]
     Active Substance: TALC
     Indication: PLEURAL EFFUSION
     Dosage: DOSAGE IS UNCERTAIN
     Route: 065
     Dates: start: 20170919
  11. CALONAL [Concomitant]
     Active Substance: ACETAMINOPHEN
     Indication: PYREXIA
     Dosage: DOSAGE IS UNCERTAIN
     Route: 065
     Dates: start: 20170919
  12. RINDERON VG [Concomitant]
     Active Substance: BETAMETHASONE VALERATE\GENTAMICIN SULFATE
     Indication: PARONYCHIA
     Dosage: DOSAGE IS UNCERTAIN
     Route: 003
     Dates: start: 20160614
  13. AZUNOL [GUAIAZULENE] [Concomitant]
     Active Substance: GUAIAZULENE
     Indication: STOMATITIS
     Dosage: DOSAGE IS UNCERTAIN
     Route: 049
     Dates: start: 20160315

REACTIONS (2)
  - Pneumothorax [Recovered/Resolved]
  - Hepatic function abnormal [Recovered/Resolved]

NARRATIVE: CASE EVENT DATE: 20160419
